FAERS Safety Report 18427042 (Version 1)
Quarter: 2020Q4

REPORT INFORMATION
  Report Type: Spontaneous
  Country: FI (occurrence: FI)
  Receive Date: 20201026
  Receipt Date: 20201026
  Transmission Date: 20210114
  Serious: Yes (Other)
  Sender: FDA-Public Use
  Company Number: FI-PFIZER INC-2020410601

PATIENT
  Age: 44 Year
  Sex: Female

DRUGS (1)
  1. TEMESTA (LORAZEPAM) [Suspect]
     Active Substance: LORAZEPAM

REACTIONS (1)
  - Anaphylactic reaction [Unknown]
